FAERS Safety Report 7709580-1 (Version None)
Quarter: 2011Q3

REPORT INFORMATION
  Report Type: 
  Country: None (occurrence: None)
  Receive Date: 20110825
  Receipt Date: 20110818
  Transmission Date: 20111222
  Serious: Yes (Death, Other)
  Sender: FDA-Public Use
  Company Number: CR-GENZYME-RENA-1001290

PATIENT
  Age: 30 Year
  Sex: Male

DRUGS (8)
  1. METILDOPA [Concomitant]
     Indication: HYPERTENSION
     Route: 065
  2. COLCHICINE [Concomitant]
     Indication: GOUT
     Route: 065
  3. FOLIC ACID [Concomitant]
     Indication: ANAEMIA
     Route: 065
  4. HYDRALAZINE HCL [Concomitant]
     Indication: HYPERTENSION
     Route: 065
  5. RENVELA [Suspect]
     Indication: HYPERPHOSPHATAEMIA
     Dosage: 0.8 G, TID
     Route: 048
     Dates: start: 20110501
  6. INDOMETHACIN [Concomitant]
     Indication: GOUT
     Route: 065
  7. FERROUS SULFATE TAB [Concomitant]
     Indication: ANAEMIA
     Route: 065
  8. KAYEXALATE [Concomitant]
     Indication: HYPERKALAEMIA
     Route: 065

REACTIONS (2)
  - HAEMODYNAMIC INSTABILITY [None]
  - GASTROINTESTINAL PERFORATION [None]
